FAERS Safety Report 4358586-1 (Version None)
Quarter: 2004Q2

REPORT INFORMATION
  Report Type: 
  Country: None (occurrence: None)
  Receive Date: 20040514
  Receipt Date: 20040427
  Transmission Date: 20050107
  Serious: Yes (Other)
  Sender: FDA-Public Use
  Company Number: 2004-UK-00426UK

PATIENT
  Age: 45 Year
  Sex: Male

DRUGS (4)
  1. MICARDIS HCT [Suspect]
     Indication: HYPERTENSION
     Dosage: 40 / 12.5 DAILY  PO
     Route: 048
     Dates: start: 20031211, end: 20040201
  2. THYROXINE [Concomitant]
  3. TERFENADINE [Concomitant]
  4. BENDROFLUAZIDE (BENDROFLUMETHAZIDE) [Concomitant]

REACTIONS (6)
  - CHEST PAIN [None]
  - DISCOMFORT [None]
  - MIGRAINE [None]
  - NAUSEA [None]
  - VERTIGO [None]
  - VISUAL DISTURBANCE [None]
